FAERS Safety Report 15486983 (Version 1)
Quarter: 2018Q4

REPORT INFORMATION
  Report Type: Spontaneous
  Country: GB (occurrence: GB)
  Receive Date: 20181011
  Receipt Date: 20181011
  Transmission Date: 20190205
  Serious: Yes (Hospitalization, Other)
  Sender: FDA-Public Use
  Company Number: GB-AUROBINDO-AUR-APL-2018-046842

PATIENT
  Age: 52 Year
  Sex: Male

DRUGS (2)
  1. SIMVASTATIN. [Suspect]
     Active Substance: SIMVASTATIN
     Indication: IMMUNE-MEDIATED NECROTISING MYOPATHY
     Dosage: 40 MILLIGRAM, INCREASED DOSE 12 MONTHS BEFORE
     Route: 065
  2. SIMVASTATIN. [Suspect]
     Active Substance: SIMVASTATIN
     Dosage: 20 MILLIGRAM  OVER 10 YEARS
     Route: 048

REACTIONS (6)
  - Dysphagia [Recovered/Resolved]
  - Myopathy [Recovered/Resolved]
  - Weight decreased [Recovered/Resolved]
  - Myalgia [Recovered/Resolved]
  - Immune-mediated necrotising myopathy [Recovered/Resolved]
  - Irritability [Recovered/Resolved]
